FAERS Safety Report 12204217 (Version 1)
Quarter: 2016Q1

REPORT INFORMATION
  Report Type: Spontaneous
  Country: US (occurrence: None)
  Receive Date: 20160322
  Receipt Date: 20160322
  Transmission Date: 20160526
  Serious: No
  Sender: FDA-Public Use
  Company Number: None

PATIENT
  Age: 65 Year
  Sex: Female
  Weight: 62.6 kg

DRUGS (1)
  1. RANITIDINE [Suspect]
     Active Substance: RANITIDINE\RANITIDINE HYDROCHLORIDE
     Indication: VOCAL CORD POLYP
     Dosage: ONCE
     Route: 048

REACTIONS (3)
  - Cheilitis [None]
  - Tongue blistering [None]
  - Oral mucosal exfoliation [None]

NARRATIVE: CASE EVENT DATE: 20160308
